FAERS Safety Report 20824907 (Version 4)
Quarter: 2022Q3

REPORT INFORMATION
  Report Type: Spontaneous
  Country: US (occurrence: US)
  Receive Date: 20220513
  Receipt Date: 20220802
  Transmission Date: 20221026
  Serious: No
  Sender: FDA-Public Use
  Company Number: US-PFIZER INC-202200452351

PATIENT
  Age: 64 Year
  Sex: Male

DRUGS (1)
  1. GENOTROPIN [Suspect]
     Active Substance: SOMATROPIN
     Dosage: 5 MG, DAILY

REACTIONS (6)
  - Injection site haemorrhage [Unknown]
  - Body height decreased [Unknown]
  - Weight fluctuation [Unknown]
  - Device use issue [Unknown]
  - Device breakage [Unknown]
  - Device use issue [Unknown]
